FAERS Safety Report 9152966 (Version 1)
Quarter: 2013Q1

REPORT INFORMATION
  Report Type: Spontaneous
  Country: US (occurrence: US)
  Receive Date: 20130206
  Receipt Date: 20130206
  Transmission Date: 20140127
  Serious: Yes (Congenital Anomaly, Other)
  Sender: FDA-Public Use
  Company Number: US-RB-049350-13

PATIENT
  Age: 0 None
  Sex: Female

DRUGS (1)
  1. BUPRENORPHINE [Suspect]
     Indication: DRUG DEPENDENCE
     Dosage: DOSING DETAILS UNKNOWN
     Route: 064
     Dates: start: 2008, end: 20081016

REACTIONS (3)
  - Foetal exposure during pregnancy [Recovered/Resolved]
  - Tooth development disorder [Unknown]
  - Abnormal behaviour [Unknown]
